FAERS Safety Report 9196612 (Version 2)
Quarter: 2013Q2

REPORT INFORMATION
  Report Type: Spontaneous
  Country: AU (occurrence: AU)
  Receive Date: 20130328
  Receipt Date: 20130503
  Transmission Date: 20140414
  Serious: Yes (Death, Life-Threatening, Hospitalization)
  Sender: FDA-Public Use
  Company Number: AU-B.I. PHARMACEUTICALS,INC./RIDGEFIELD-2013-AU-00371AU

PATIENT
  Age: 83 Year
  Sex: Female
  Weight: 75.3 kg

DRUGS (8)
  1. PRADAXA [Suspect]
     Indication: CEREBROVASCULAR ACCIDENT PROPHYLAXIS
     Dosage: 220 MG
     Dates: start: 20111012
  2. PRADAXA [Suspect]
     Indication: ATRIAL FIBRILLATION
  3. AVANZA [Concomitant]
     Dosage: 30 MG
     Dates: start: 20120203
  4. COVERSYL [Concomitant]
     Dosage: 10 MG
     Dates: start: 20080521
  5. KEFLEX [Concomitant]
     Dosage: 500 MG
     Dates: start: 20120824
  6. LASIX [Concomitant]
     Dosage: 40 MG
     Dates: start: 20111021
  7. LIPITOR [Concomitant]
     Dosage: 40 MG
     Dates: start: 20080521
  8. RISPERDAL [Concomitant]
     Dosage: 1 MG
     Dates: start: 20120203

REACTIONS (2)
  - Cardiac failure congestive [Fatal]
  - Aortic stenosis [Fatal]
